FAERS Safety Report 12748422 (Version 1)
Quarter: 2016Q3

REPORT INFORMATION
  Report Type: Spontaneous
  Country: US (occurrence: US)
  Receive Date: 20160915
  Receipt Date: 20160915
  Transmission Date: 20161109
  Serious: Yes (Other)
  Sender: FDA-Public Use
  Company Number: US-MYLANLABS-2016M1039350

PATIENT

DRUGS (1)
  1. LEVOTHYROXINE. [Suspect]
     Active Substance: LEVOTHYROXINE
     Indication: HYPOTHYROIDISM
     Dosage: UNK
     Dates: start: 201504, end: 201508

REACTIONS (12)
  - Ear infection fungal [Unknown]
  - Cystitis [Unknown]
  - Rhinorrhoea [Unknown]
  - Migraine with aura [Unknown]
  - Urticaria [Unknown]
  - Immune system disorder [Unknown]
  - Visual impairment [Unknown]
  - Palpitations [Unknown]
  - Constipation [Unknown]
  - Contusion [Unknown]
  - Seizure [Unknown]
  - Eye disorder [Unknown]

NARRATIVE: CASE EVENT DATE: 2015
